FAERS Safety Report 18414849 (Version 1)
Quarter: 2020Q4

REPORT INFORMATION
  Report Type: Spontaneous
  Country: HR (occurrence: HR)
  Receive Date: 20201022
  Receipt Date: 20201022
  Transmission Date: 20210114
  Serious: Yes (Hospitalization)
  Sender: FDA-Public Use
  Company Number: HR-ROCHE-2699823

PATIENT
  Sex: Male

DRUGS (3)
  1. DIAZEPAM. [Suspect]
     Active Substance: DIAZEPAM
     Indication: PRODUCT USED FOR UNKNOWN INDICATION
     Route: 065
  2. RISPOLEPT [Suspect]
     Active Substance: RISPERIDONE
     Indication: SCHIZOPHRENIA
     Dosage: 1,0,2
     Route: 065
     Dates: start: 2015, end: 2015
  3. LAMOTRIGINE. [Suspect]
     Active Substance: LAMOTRIGINE
     Indication: PRODUCT USED FOR UNKNOWN INDICATION
     Dosage: 1,0,2
     Route: 065

REACTIONS (2)
  - Circadian rhythm sleep disorder [Unknown]
  - Family stress [Unknown]

NARRATIVE: CASE EVENT DATE: 2015
